FAERS Safety Report 5448827-1 (Version None)
Quarter: 2007Q3

REPORT INFORMATION
  Report Type: 
  Country: None (occurrence: None)
  Receive Date: 20070911
  Receipt Date: 20070705
  Transmission Date: 20080115
  Serious: No
  Sender: FDA-Public Use
  Company Number: US-BRISTOL-MYERS SQUIBB COMPANY-13836952

PATIENT
  Sex: Female
  Weight: 120 kg

DRUGS (9)
  1. EMSAM [Suspect]
     Indication: BIPOLAR DISORDER
     Route: 062
  2. FORADIL [Concomitant]
  3. NEXIUM [Concomitant]
  4. SINGULAIR [Concomitant]
  5. LAMICTAL [Concomitant]
  6. LEVOTHYROXINE SODIUM [Concomitant]
  7. TOPAMAX [Concomitant]
  8. ZYRTEC [Concomitant]
  9. LORAZEPAM [Concomitant]

REACTIONS (1)
  - APPLICATION SITE REACTION [None]
